FAERS Safety Report 18592470 (Version 19)
Quarter: 2021Q2

REPORT INFORMATION
  Report Type: Report from Study
  Country: BR (occurrence: BR)
  Receive Date: 20201208
  Receipt Date: 20210629
  Transmission Date: 20210717
  Serious: Yes (Hospitalization, Other)
  Sender: FDA-Public Use
  Company Number: BR-TAKEDA-BR202029221

PATIENT
  Age: 34 Year
  Sex: Female
  Weight: 58.96 kg

DRUGS (58)
  1. TEDUGLUTIDE [Suspect]
     Active Substance: TEDUGLUTIDE
     Dosage: 34 MILLILITER
     Route: 065
     Dates: start: 20200806
  2. TEDUGLUTIDE [Suspect]
     Active Substance: TEDUGLUTIDE
     Dosage: 34 MILLILITER
     Route: 065
     Dates: start: 20200806
  3. TEDUGLUTIDE [Suspect]
     Active Substance: TEDUGLUTIDE
     Dosage: 0.34 MILLILITER
     Route: 065
     Dates: start: 20200806
  4. TEDUGLUTIDE [Suspect]
     Active Substance: TEDUGLUTIDE
     Dosage: 0.34 MILLILITER
     Route: 065
     Dates: start: 20200806
  5. TEDUGLUTIDE [Suspect]
     Active Substance: TEDUGLUTIDE
     Dosage: 0.30 MILLILITER, QD
     Route: 058
     Dates: start: 20200806
  6. TEDUGLUTIDE [Suspect]
     Active Substance: TEDUGLUTIDE
     Dosage: UNK
     Route: 058
     Dates: start: 20200806
  7. METOCLOPRAMIDE. [Suspect]
     Active Substance: METOCLOPRAMIDE
     Indication: PRODUCT USED FOR UNKNOWN INDICATION
     Dosage: BEFORE LUNCH
     Route: 065
  8. PAREGORICO [Concomitant]
     Indication: DIARRHOEA
     Dosage: 48 DROPS
     Route: 065
     Dates: start: 2017
  9. CHOLESTYRAMINE. [Concomitant]
     Active Substance: CHOLESTYRAMINE
     Indication: BILE OUTPUT
     Dosage: 4 MILLIGRAM, BID
     Route: 065
     Dates: start: 2017
  10. VITAMINS NOS [Concomitant]
     Active Substance: VITAMINS
     Indication: VITAMIN SUPPLEMENTATION
     Dosage: UNK
     Route: 065
  11. TEDUGLUTIDE [Suspect]
     Active Substance: TEDUGLUTIDE
     Dosage: 3.3 MILLIGRAM, QD
     Route: 065
     Dates: start: 202008
  12. TEDUGLUTIDE [Suspect]
     Active Substance: TEDUGLUTIDE
     Dosage: 3.3 MILLIGRAM, QD
     Route: 065
     Dates: start: 202008
  13. DOMPERIDONE [Suspect]
     Active Substance: DOMPERIDONE
     Indication: ILLNESS
     Dosage: 1 TAB BEFORE BREAKFAST
     Route: 065
  14. TEDUGLUTIDE [Suspect]
     Active Substance: TEDUGLUTIDE
     Dosage: 0.34 MILLILITER, QD
     Route: 058
     Dates: start: 20200806
  15. TEDUGLUTIDE [Suspect]
     Active Substance: TEDUGLUTIDE
     Dosage: 3.3 MILLIGRAM, QD
     Route: 065
     Dates: start: 202008
  16. TEDUGLUTIDE [Suspect]
     Active Substance: TEDUGLUTIDE
     Dosage: 0.30 MILLILITER
     Route: 058
     Dates: start: 20200806
  17. DOMPERIDONE [Suspect]
     Active Substance: DOMPERIDONE
     Indication: NAUSEA
  18. BACTRIM [Suspect]
     Active Substance: SULFAMETHOXAZOLE\TRIMETHOPRIM
     Indication: PRODUCT USED FOR UNKNOWN INDICATION
     Dosage: UNK
     Route: 065
     Dates: end: 20210326
  19. PANCREATIN;SIMETICONE [Concomitant]
     Indication: NAUSEA
     Dosage: UNK UNK, BID
     Route: 065
  20. TEDUGLUTIDE [Suspect]
     Active Substance: TEDUGLUTIDE
     Indication: SHORT-BOWEL SYNDROME
     Dosage: 3.4 MILLIGRAM, QD
     Route: 065
     Dates: start: 20200806
  21. TEDUGLUTIDE [Suspect]
     Active Substance: TEDUGLUTIDE
     Dosage: 5 MILLIGRAM, 0.5 ML DILUENT
     Route: 058
     Dates: start: 20200806
  22. TEDUGLUTIDE [Suspect]
     Active Substance: TEDUGLUTIDE
     Dosage: 0.30 MILLILITER, QD
     Route: 058
     Dates: start: 20200806
  23. TEDUGLUTIDE [Suspect]
     Active Substance: TEDUGLUTIDE
     Dosage: 3.3 MILLIGRAM, QD
     Route: 065
     Dates: start: 202008
  24. TEDUGLUTIDE [Suspect]
     Active Substance: TEDUGLUTIDE
     Dosage: UNK
     Route: 058
     Dates: start: 20200806
  25. ESOMEPRAZOLE. [Suspect]
     Active Substance: ESOMEPRAZOLE MAGNESIUM
     Indication: PROPHYLAXIS AGAINST GASTROINTESTINAL ULCER
     Dosage: 20 MILLIGRAM, QD
     Route: 065
     Dates: start: 2017, end: 20201025
  26. TEDUGLUTIDE [Suspect]
     Active Substance: TEDUGLUTIDE
     Indication: SHORT-BOWEL SYNDROME
     Dosage: 3.4 MILLIGRAM, QD
     Route: 065
     Dates: start: 20200806
  27. TEDUGLUTIDE [Suspect]
     Active Substance: TEDUGLUTIDE
     Dosage: 34 MILLILITER
     Route: 065
     Dates: start: 20200806
  28. TEDUGLUTIDE [Suspect]
     Active Substance: TEDUGLUTIDE
     Dosage: 0.34 MILLILITER, QD
     Route: 058
     Dates: start: 20200806
  29. TEDUGLUTIDE [Suspect]
     Active Substance: TEDUGLUTIDE
     Dosage: 5 MILLIGRAM, 0.5 ML DILUENT
     Route: 058
     Dates: start: 20200806
  30. TEDUGLUTIDE [Suspect]
     Active Substance: TEDUGLUTIDE
     Dosage: 5 MILLIGRAM, 0.5 ML DILUENT
     Route: 058
     Dates: start: 20200806
  31. TEDUGLUTIDE [Suspect]
     Active Substance: TEDUGLUTIDE
     Dosage: 3.3 MILLIGRAM, QD
     Route: 065
     Dates: start: 202008
  32. TEDUGLUTIDE [Suspect]
     Active Substance: TEDUGLUTIDE
     Dosage: 0.30 MILLILITER
     Route: 058
     Dates: start: 20200806
  33. TEDUGLUTIDE [Suspect]
     Active Substance: TEDUGLUTIDE
     Dosage: UNK
     Route: 058
     Dates: start: 20200806
  34. ESOMEPRAZOLE. [Suspect]
     Active Substance: ESOMEPRAZOLE MAGNESIUM
     Dosage: 20 MILLIGRAM
     Route: 065
     Dates: start: 2018
  35. NEXIUM I.V. [Concomitant]
     Active Substance: ESOMEPRAZOLE SODIUM
     Indication: GASTRIC DISORDER
     Dosage: 20 MILLIGRAM, QD
     Route: 065
     Dates: start: 2017
  36. TEDUGLUTIDE [Suspect]
     Active Substance: TEDUGLUTIDE
     Indication: SHORT-BOWEL SYNDROME
     Dosage: 3.4 MILLIGRAM, QD
     Route: 065
     Dates: start: 20200806
  37. TEDUGLUTIDE [Suspect]
     Active Substance: TEDUGLUTIDE
     Indication: SHORT-BOWEL SYNDROME
     Dosage: 3.4 MILLIGRAM, QD
     Route: 065
     Dates: start: 20200806
  38. TEDUGLUTIDE [Suspect]
     Active Substance: TEDUGLUTIDE
     Dosage: 0.34 MILLILITER, QD
     Route: 058
     Dates: start: 20200806
  39. TEDUGLUTIDE [Suspect]
     Active Substance: TEDUGLUTIDE
     Dosage: 0.34 MILLILITER, QD
     Route: 058
     Dates: start: 20200806
  40. TEDUGLUTIDE [Suspect]
     Active Substance: TEDUGLUTIDE
     Dosage: 0.30 MILLILITER, QD
     Route: 058
     Dates: start: 20200806
  41. TEDUGLUTIDE [Suspect]
     Active Substance: TEDUGLUTIDE
     Dosage: 3.3 MILLIGRAM, QD
     Route: 065
     Dates: start: 202008
  42. TEDUGLUTIDE [Suspect]
     Active Substance: TEDUGLUTIDE
     Dosage: 3.3 MILLIGRAM, QD
     Route: 065
     Dates: start: 202008
  43. TEDUGLUTIDE [Suspect]
     Active Substance: TEDUGLUTIDE
     Dosage: 0.30 MILLILITER
     Route: 058
     Dates: start: 20200806
  44. TEDUGLUTIDE [Suspect]
     Active Substance: TEDUGLUTIDE
     Dosage: UNK
     Route: 058
     Dates: start: 20200806
  45. ANESTHESIA S/I 60 [Concomitant]
     Active Substance: PROPOFOL
     Dosage: UNK
     Route: 065
  46. HISTAMINE [Concomitant]
     Active Substance: HISTAMINE
     Dosage: UNK
     Route: 065
  47. TEDUGLUTIDE [Suspect]
     Active Substance: TEDUGLUTIDE
     Dosage: 34 MILLILITER
     Route: 065
     Dates: start: 20200806
  48. TEDUGLUTIDE [Suspect]
     Active Substance: TEDUGLUTIDE
     Dosage: 0.34 MILLILITER
     Route: 065
     Dates: start: 20200806
  49. TEDUGLUTIDE [Suspect]
     Active Substance: TEDUGLUTIDE
     Dosage: 0.34 MILLILITER
     Route: 065
     Dates: start: 20200806
  50. TEDUGLUTIDE [Suspect]
     Active Substance: TEDUGLUTIDE
     Dosage: 0.34 MILLILITER, QD
     Route: 058
     Dates: start: 20200806
  51. TEDUGLUTIDE [Suspect]
     Active Substance: TEDUGLUTIDE
     Dosage: 0.30 MILLILITER, QD
     Route: 058
     Dates: start: 20200806
  52. CENTRUM MULTIGUMMIES [Concomitant]
     Active Substance: MINERALS\VITAMINS
     Indication: VITAMIN SUPPLEMENTATION
     Dosage: UNK UNK, QD
     Route: 065
     Dates: start: 2017
  53. TEDUGLUTIDE [Suspect]
     Active Substance: TEDUGLUTIDE
     Dosage: 0.34 MILLILITER, QD
     Route: 058
     Dates: start: 20200806
  54. TEDUGLUTIDE [Suspect]
     Active Substance: TEDUGLUTIDE
     Dosage: 0.34 MILLILITER, QD
     Route: 058
     Dates: start: 20200806
  55. TEDUGLUTIDE [Suspect]
     Active Substance: TEDUGLUTIDE
     Dosage: 0.34 MILLILITER, QD
     Route: 058
     Dates: start: 20200806
  56. TEDUGLUTIDE [Suspect]
     Active Substance: TEDUGLUTIDE
     Dosage: 5 MILLIGRAM, 0.5 ML DILUENT
     Route: 058
     Dates: start: 20200806
  57. TEDUGLUTIDE [Suspect]
     Active Substance: TEDUGLUTIDE
     Dosage: 3.3 MILLIGRAM, QD
     Route: 065
     Dates: start: 202008
  58. TEDUGLUTIDE [Suspect]
     Active Substance: TEDUGLUTIDE
     Dosage: 0.30 MILLILITER
     Route: 058
     Dates: start: 20200806

REACTIONS (67)
  - Vomiting [Not Recovered/Not Resolved]
  - Blister [Unknown]
  - Crying [Unknown]
  - Procedural pain [Unknown]
  - Joint swelling [Unknown]
  - Back pain [Unknown]
  - Heavy menstrual bleeding [Not Recovered/Not Resolved]
  - Unevaluable event [Recovering/Resolving]
  - Parenteral nutrition [Unknown]
  - Blood albumin decreased [Not Recovered/Not Resolved]
  - Arthralgia [Unknown]
  - Mouth swelling [Not Recovered/Not Resolved]
  - Oral pain [Unknown]
  - Limb injury [Unknown]
  - Depressed mood [Not Recovered/Not Resolved]
  - Application site haemorrhage [Recovering/Resolving]
  - Procedural haemorrhage [Unknown]
  - Application site pain [Recovered/Resolved]
  - Mouth injury [Unknown]
  - Chloasma [Not Recovered/Not Resolved]
  - Motion sickness [Not Recovered/Not Resolved]
  - Drug hypersensitivity [Recovered/Resolved]
  - Catheter site pain [Recovering/Resolving]
  - Discouragement [Recovering/Resolving]
  - Asthenia [Recovering/Resolving]
  - Blood zinc decreased [Recovering/Resolving]
  - Application site discolouration [Recovering/Resolving]
  - Pigmentation disorder [Recovering/Resolving]
  - Contusion [Recovering/Resolving]
  - Feeding disorder [Unknown]
  - Peripheral swelling [Not Recovered/Not Resolved]
  - Catheter site erythema [Unknown]
  - Memory impairment [Unknown]
  - Salivary hypersecretion [Not Recovered/Not Resolved]
  - Rash macular [Not Recovered/Not Resolved]
  - Dizziness [Unknown]
  - Weight increased [Recovered/Resolved]
  - Alopecia [Unknown]
  - Polyuria [Unknown]
  - Abnormal faeces [Recovered/Resolved]
  - Hypoaesthesia oral [Unknown]
  - Muscle spasms [Recovering/Resolving]
  - Abdominal pain upper [Recovering/Resolving]
  - Drug interaction [Unknown]
  - Nausea [Recovering/Resolving]
  - Oral discomfort [Unknown]
  - Tension [Unknown]
  - Injury associated with device [Not Recovered/Not Resolved]
  - Product label issue [Unknown]
  - Contusion [Recovering/Resolving]
  - Menstruation irregular [Recovering/Resolving]
  - Gastrointestinal bacterial overgrowth [Unknown]
  - Tendonitis [Unknown]
  - Injection site pain [Unknown]
  - Faecal volume increased [Recovering/Resolving]
  - Blood albumin increased [Not Recovered/Not Resolved]
  - Diarrhoea [Recovering/Resolving]
  - Dermatitis [Unknown]
  - Rash pruritic [Not Recovered/Not Resolved]
  - Dyspepsia [Unknown]
  - Irritable bowel syndrome [Unknown]
  - Weight fluctuation [Not Recovered/Not Resolved]
  - Dry mouth [Recovered/Resolved]
  - Abdominal pain [Recovered/Resolved]
  - Peripheral swelling [Unknown]
  - Pain in extremity [Not Recovered/Not Resolved]
  - Dehydration [Recovering/Resolving]

NARRATIVE: CASE EVENT DATE: 20200806
